FAERS Safety Report 9394366 (Version 1)
Quarter: 2013Q3

REPORT INFORMATION
  Report Type: Spontaneous
  Country: FR (occurrence: FR)
  Receive Date: 20130711
  Receipt Date: 20130711
  Transmission Date: 20140515
  Serious: Yes (Other)
  Sender: FDA-Public Use
  Company Number: FR-ROCHE-1247361

PATIENT
  Age: 20 Year
  Sex: Female

DRUGS (2)
  1. ZELBORAF [Suspect]
     Indication: MALIGNANT MELANOMA STAGE IV
     Route: 048
     Dates: start: 20130128, end: 20130513
  2. LAMALINE [Concomitant]

REACTIONS (1)
  - Panniculitis [Recovering/Resolving]
